FAERS Safety Report 8570960-6 (Version None)
Quarter: 2012Q3

REPORT INFORMATION
  Report Type: 
  Country: None (occurrence: None)
  Receive Date: 20120806
  Receipt Date: 20120726
  Transmission Date: 20120928
  Serious: No
  Sender: FDA-Public Use
  Company Number: US-BIOGENIDEC-2012BI028456

PATIENT
  Sex: Female

DRUGS (2)
  1. TYSABRI [Suspect]
     Indication: MULTIPLE SCLEROSIS
     Route: 042
     Dates: start: 20100508
  2. PROCRIT [Concomitant]
     Indication: BLOOD COUNT ABNORMAL
     Route: 030

REACTIONS (2)
  - OEDEMA PERIPHERAL [None]
  - BIOPSY BREAST ABNORMAL [None]
